FAERS Safety Report 13792397 (Version 2)
Quarter: 2020Q4

REPORT INFORMATION
  Report Type: Spontaneous
  Country: TR (occurrence: TR)
  Receive Date: 20170725
  Receipt Date: 20201021
  Transmission Date: 20210113
  Serious: Yes (Hospitalization, Other)
  Sender: FDA-Public Use
  Company Number: ALCN2017TR004566

PATIENT
  Age: 2 Year
  Sex: Male

DRUGS (6)
  1. PHYSOSTIGMINE [Suspect]
     Active Substance: PHYSOSTIGMINE
     Indication: PRODUCT USED FOR UNKNOWN INDICATION
     Route: 065
  2. TOPIRAMATE. [Concomitant]
     Active Substance: TOPIRAMATE
     Indication: EPILEPSY
     Dosage: 5 MG/KG, QD
     Route: 065
  3. TOPIRAMATE. [Concomitant]
     Active Substance: TOPIRAMATE
     Indication: CEREBRAL PALSY
  4. OSELTAMIVIR [Suspect]
     Active Substance: OSELTAMIVIR
     Indication: INFLUENZA
     Dosage: UNK
     Route: 065
  5. TROPICAMIDE. [Suspect]
     Active Substance: TROPICAMIDE
     Indication: PRODUCT USED FOR UNKNOWN INDICATION
     Dosage: UNK
     Route: 047
  6. CEFTRIAXONE. [Suspect]
     Active Substance: CEFTRIAXONE
     Indication: INFLUENZA
     Dosage: UNK
     Route: 065

REACTIONS (21)
  - Agitation [Recovered/Resolved]
  - Rhinorrhoea [Recovered/Resolved]
  - Muscle spasticity [Recovered/Resolved]
  - Wheezing [Recovered/Resolved]
  - Hypohidrosis [Recovered/Resolved]
  - Sedation [Recovered/Resolved]
  - Aptyalism [Recovered/Resolved]
  - Toxicity to various agents [Recovered/Resolved]
  - Sinus tachycardia [Recovered/Resolved]
  - Overdose [Recovered/Resolved]
  - Cataract [Recovered/Resolved]
  - Oral disorder [Recovered/Resolved]
  - Shock [Recovered/Resolved]
  - Anticholinergic syndrome [Recovered/Resolved]
  - Cough [Recovered/Resolved]
  - Mydriasis [Recovered/Resolved]
  - Flushing [Recovered/Resolved]
  - Dry skin [Recovered/Resolved]
  - Respiratory distress [Recovered/Resolved]
  - Urinary retention [Recovered/Resolved]
  - Eye disorder [Recovered/Resolved]
